FAERS Safety Report 16760115 (Version 1)
Quarter: 2019Q3

REPORT INFORMATION
  Report Type: Spontaneous
  Country: IT (occurrence: IT)
  Receive Date: 20190830
  Receipt Date: 20190830
  Transmission Date: 20191005
  Serious: Yes (Life-Threatening)
  Sender: FDA-Public Use
  Company Number: IT-PFIZER INC-2019373228

PATIENT
  Age: 83 Year
  Sex: Male

DRUGS (3)
  1. ALPRAZOLAM. [Suspect]
     Active Substance: ALPRAZOLAM
     Indication: DEMENTIA
     Dosage: 10 GTT, 1X/DAY
     Route: 048
     Dates: start: 20070101, end: 20071107
  2. REMINYL [Suspect]
     Active Substance: GALANTAMINE
     Indication: VASCULAR DEMENTIA
     Dosage: 8 MG, 1X/DAY
     Route: 048
     Dates: start: 20070101, end: 20071107
  3. TICLOPIDINE [Suspect]
     Active Substance: TICLOPIDINE
     Indication: CEREBROVASCULAR DISORDER
     Dosage: 250 MG, 1X/DAY
     Route: 048
     Dates: start: 20040101, end: 20071107

REACTIONS (2)
  - Thrombocytopenia [Recovered/Resolved]
  - Coombs negative haemolytic anaemia [Recovered/Resolved]

NARRATIVE: CASE EVENT DATE: 20071107
